FAERS Safety Report 13283449 (Version 1)
Quarter: 2017Q1

REPORT INFORMATION
  Report Type: Spontaneous
  Country: IN (occurrence: IN)
  Receive Date: 20170301
  Receipt Date: 20170301
  Transmission Date: 20170428
  Serious: Yes (Death, Hospitalization, Other)
  Sender: FDA-Public Use
  Company Number: IN-CELGENEUS-IND-2017025036

PATIENT

DRUGS (6)
  1. REVLIMID [Suspect]
     Active Substance: LENALIDOMIDE
     Indication: NON-HODGKIN^S LYMPHOMA
     Dosage: 10 MILLIGRAM
     Route: 048
  2. PREDNISOLONE. [Concomitant]
     Active Substance: PREDNISOLONE
     Indication: NON-HODGKIN^S LYMPHOMA
     Dosage: 60 MILLIGRAM/SQ. METER
     Route: 065
  3. RITUXIMAB [Concomitant]
     Active Substance: RITUXIMAB
     Indication: NON-HODGKIN^S LYMPHOMA
     Dosage: 375 MILLIGRAM/SQ. METER
     Route: 041
  4. VINCRISTINE [Suspect]
     Active Substance: VINCRISTINE
     Indication: NON-HODGKIN^S LYMPHOMA
     Dosage: 1.4 MILLIGRAM/SQ. METER
     Route: 041
  5. ASPIRIN. [Concomitant]
     Active Substance: ASPIRIN
     Indication: PROPHYLAXIS
     Route: 065
  6. BENDAMUSTINE [Concomitant]
     Active Substance: BENDAMUSTINE
     Indication: NON-HODGKIN^S LYMPHOMA
     Dosage: 90 MILLIGRAM/SQ. METER
     Route: 041

REACTIONS (16)
  - Meningitis cryptococcal [Unknown]
  - Myocardial infarction [Fatal]
  - Asthenia [Unknown]
  - Neutropenia [Unknown]
  - Alopecia [Unknown]
  - Disease progression [Unknown]
  - Constipation [Unknown]
  - Disease progression [Fatal]
  - Febrile neutropenia [Unknown]
  - Vomiting [Unknown]
  - Fatigue [Unknown]
  - Thrombocytopenia [Unknown]
  - Nausea [Unknown]
  - Sepsis [Fatal]
  - Anaemia [Unknown]
  - Decreased appetite [Unknown]
